FAERS Safety Report 8183998-8 (Version None)
Quarter: 2012Q1

REPORT INFORMATION
  Report Type: 
  Country: None (occurrence: None)
  Receive Date: 20120305
  Receipt Date: 20120223
  Transmission Date: 20120608
  Serious: No
  Sender: FDA-Public Use
  Company Number: US-BAYER-2012-019414

PATIENT
  Sex: Female
  Weight: 69 kg

DRUGS (1)
  1. ALEVE (CAPLET) [Suspect]
     Indication: INFLAMMATION
     Dosage: 2 DF, PRN
     Route: 048
     Dates: start: 20120201

REACTIONS (1)
  - CONSTIPATION [None]
